FAERS Safety Report 22217804 (Version 1)
Quarter: 2023Q2

REPORT INFORMATION
  Report Type: Spontaneous
  Country: ES (occurrence: ES)
  Receive Date: 20230417
  Receipt Date: 20230417
  Transmission Date: 20230721
  Serious: Yes (Disabling, Other)
  Sender: FDA-Public Use
  Company Number: ES-ORPHANEU-2019007358

PATIENT

DRUGS (8)
  1. CARBAGLU [Suspect]
     Active Substance: CARGLUMIC ACID
     Indication: Hyperammonaemia
     Dosage: 200 MG/KG/DAY
     Route: 048
     Dates: start: 201810, end: 201901
  2. CARBAGLU [Suspect]
     Active Substance: CARGLUMIC ACID
     Dosage: 70-100 MG/KG, QD, REGIMEN DIVIDED INTO 4
     Route: 048
     Dates: start: 201901, end: 201910
  3. CARBAGLU [Suspect]
     Active Substance: CARGLUMIC ACID
     Dosage: 60 MG/KG, QD
     Dates: start: 201910
  4. CARBAGLU [Suspect]
     Active Substance: CARGLUMIC ACID
     Dosage: 200 MG/KG/DAY
     Dates: start: 20191022, end: 20191203
  5. ISOLEUCINE [Concomitant]
     Active Substance: ISOLEUCINE
     Indication: Product used for unknown indication
     Dosage: 500 MG, QD
  6. TIAMIN [Concomitant]
     Indication: Product used for unknown indication
     Dosage: 300 MG, QD
  7. VITAMIN D                          /00107901/ [Concomitant]
     Indication: Product used for unknown indication
     Dosage: 400 IU, QD
  8. SODIUM BICARBONATE [Concomitant]
     Active Substance: SODIUM BICARBONATE
     Indication: Product used for unknown indication
     Dosage: UNK

REACTIONS (2)
  - Hyperthyroidism [Not Recovered/Not Resolved]
  - Gastroenteritis [Unknown]

NARRATIVE: CASE EVENT DATE: 20190101
